FAERS Safety Report 7639543-6 (Version None)
Quarter: 2011Q3

REPORT INFORMATION
  Report Type: 
  Country: None (occurrence: None)
  Receive Date: 20110727
  Receipt Date: 20110722
  Transmission Date: 20111222
  Serious: Yes (Death, Hospitalization)
  Sender: FDA-Public Use
  Company Number: FR-GLAXOSMITHKLINE-B0734467A

PATIENT
  Sex: Male

DRUGS (8)
  1. HYDROCORTISONE [Concomitant]
  2. CEFTAZIDIME SODIUM [Suspect]
     Indication: INFECTION
     Route: 042
     Dates: start: 20110626, end: 20110627
  3. PIPERACILLIN SODIUM [Suspect]
     Indication: INFECTION
     Route: 042
     Dates: start: 20110627, end: 20110702
  4. TIENAM [Concomitant]
     Indication: INFECTION
     Dates: start: 20110621, end: 20110626
  5. FLUCONAZOLE [Suspect]
     Indication: INFECTION
     Route: 048
     Dates: start: 20110627, end: 20110628
  6. PIPERACILLIN AND TAZOBACTAM [Concomitant]
     Indication: STAPHYLOCOCCAL INFECTION
     Dates: start: 20110610, end: 20110612
  7. HALDOL [Suspect]
     Indication: PRODUCT USED FOR UNKNOWN INDICATION
     Route: 048
     Dates: start: 20110612, end: 20110702
  8. AZACTAM [Concomitant]
     Indication: INFECTION
     Route: 065
     Dates: start: 20110703

REACTIONS (1)
  - AGRANULOCYTOSIS [None]
